FAERS Safety Report 15480468 (Version 2)
Quarter: 2018Q4

REPORT INFORMATION
  Report Type: Spontaneous
  Country: SI (occurrence: SI)
  Receive Date: 20181009
  Receipt Date: 20181016
  Transmission Date: 20190205
  Serious: Yes (Other)
  Sender: FDA-Public Use
  Company Number: SI-NOVOPROD-625204

PATIENT
  Age: 64 Year
  Sex: Male
  Weight: 131 kg

DRUGS (6)
  1. LANTUS [Concomitant]
     Active Substance: INSULIN GLARGINE
     Dosage: 30 U, QD (BEFORE SLEEP)
     Route: 065
     Dates: start: 20180822, end: 20180917
  2. NOVORAPID [Suspect]
     Active Substance: INSULIN ASPART
     Indication: TYPE 2 DIABETES MELLITUS
     Dosage: 21 U, QD (10-6-5 U DAILY)
     Route: 065
     Dates: end: 20180814
  3. GLUCOPHAGE [Concomitant]
     Active Substance: METFORMIN HYDROCHLORIDE
     Indication: TYPE 2 DIABETES MELLITUS
     Dosage: 2X 850 MG
     Route: 065
  4. LANTUS [Concomitant]
     Active Substance: INSULIN GLARGINE
     Indication: TYPE 2 DIABETES MELLITUS
     Dosage: 110 U, QD (BEFORE SLEEP)
     Route: 065
  5. LANTUS [Concomitant]
     Active Substance: INSULIN GLARGINE
     Dosage: 50 U, QD (BEFORE SLEEP)
     Route: 065
     Dates: start: 20180817, end: 20180821
  6. LANTUS [Concomitant]
     Active Substance: INSULIN GLARGINE
     Dosage: 70 U, QD (BEFORE SLEEP)
     Route: 065
     Dates: start: 20180814, end: 20180816

REACTIONS (1)
  - Coronary artery disease [Unknown]
